FAERS Safety Report 18512201 (Version 3)
Quarter: 2021Q1

REPORT INFORMATION
  Report Type: Spontaneous
  Country: US (occurrence: US)
  Receive Date: 20201117
  Receipt Date: 20210316
  Transmission Date: 20210419
  Serious: Yes (Disabling, Other)
  Sender: FDA-Public Use
  Company Number: US-PURDUE-USA-2020-0176686

PATIENT
  Sex: Male

DRUGS (4)
  1. DILAUDID [Suspect]
     Active Substance: HYDROMORPHONE HYDROCHLORIDE
     Indication: PAIN
     Dosage: 4 MG, 4/HOURS 6/DAILY
     Route: 048
  2. HEROIN [Suspect]
     Active Substance: DIAMORPHINE
     Indication: PRODUCT USED FOR UNKNOWN INDICATION
     Dosage: UNK
     Route: 065
  3. FENTANYL. [Suspect]
     Active Substance: FENTANYL
     Indication: PRODUCT USED FOR UNKNOWN INDICATION
     Dosage: UNK
     Route: 065
  4. OXYCONTIN [Suspect]
     Active Substance: OXYCODONE HYDROCHLORIDE
     Indication: PAIN
     Dosage: UNK, 6?8/DAILY
     Route: 048

REACTIONS (11)
  - Drug dependence [Unknown]
  - Nerve injury [Unknown]
  - Back pain [Unknown]
  - Amputation [Unknown]
  - Hepatitis post transfusion [Unknown]
  - Disability [Unknown]
  - Withdrawal syndrome [Unknown]
  - Liver injury [Unknown]
  - Splenic rupture [Unknown]
  - Neuropathic arthropathy [Unknown]
  - Dysstasia [Unknown]

NARRATIVE: CASE EVENT DATE: 1987
